FAERS Safety Report 6794931-5 (Version None)
Quarter: 2010Q2

REPORT INFORMATION
  Report Type: 
  Country: None (occurrence: None)
  Receive Date: 20100520
  Receipt Date: 20090625
  Transmission Date: 20101027
  Serious: Yes (Other)
  Sender: FDA-Public Use
  Company Number: 2009232937

PATIENT
  Age: 58 Year
  Sex: Female
  Weight: 93 kg

DRUGS (15)
  1. PROVERA [Suspect]
     Indication: HORMONE REPLACEMENT THERAPY
     Dosage: 10 MG, ORAL ; 2.5 MG, ORAL
     Route: 048
     Dates: start: 19940101, end: 19960701
  2. PROVERA [Suspect]
     Indication: HORMONE REPLACEMENT THERAPY
     Dosage: 10 MG, ORAL ; 2.5 MG, ORAL
     Route: 048
     Dates: start: 19970327, end: 20000401
  3. PREMARIN [Suspect]
     Indication: HORMONE REPLACEMENT THERAPY
     Dosage: 0.625 MG
     Dates: start: 19950201, end: 20000401
  4. PREMPRO [Suspect]
     Indication: HORMONE REPLACEMENT THERAPY
     Dosage: 0.625/2.5MG
     Dates: start: 19960701, end: 19981001
  5. TENORMIN [Concomitant]
  6. ALBUTEROL [Concomitant]
  7. ATIVAN [Concomitant]
  8. ZESTORETIC [Concomitant]
  9. PRILOSEC (OMEPRAZOLE) [Concomitant]
  10. ACCOLATE [Concomitant]
  11. METROGEL [Concomitant]
  12. FLONASE [Concomitant]
  13. PREVACID [Concomitant]
  14. CLARITIN [Concomitant]
  15. CEPHALEXIN [Concomitant]

REACTIONS (1)
  - BREAST CANCER FEMALE [None]
